FAERS Safety Report 8552525 (Version 4)
Quarter: 2012Q4

REPORT INFORMATION
  Report Type: 
  Country: GB (occurrence: GB)
  Receive Date: 20120508
  Receipt Date: 20121105
  Transmission Date: 20130627
  Serious: Yes (Hospitalization, Other)
  Sender: FDA-Public Use
  Company Number: GB-BAYER-2012-013442

PATIENT
  Age: 69 Year
  Sex: Female

DRUGS (8)
  1. AVELOX [Suspect]
     Dosage: 1 DF, QD
     Dates: start: 20101215
  2. AVELOX [Suspect]
     Dosage: 400 mg, QD
     Dates: start: 20120121, end: 20120131
  3. VENTOLIN NEBULES P.F. [Concomitant]
     Dosage: dosage: 5mg TQDS
     Dates: start: 2010
  4. UNIPHYLLIN [Concomitant]
     Dosage: UNK UNK, BID
     Dates: start: 2008
  5. SERETIDE [Concomitant]
     Dosage: UNK UNK, BID
     Dates: start: 2008
  6. MEBEVERINE [Concomitant]
     Dosage: UNK UNK, BID
     Dates: start: 2010
  7. CALCEOS [Concomitant]
     Dosage: UNK UNK, BID
     Dates: start: 2011
  8. ALENDRONIC ACID [Concomitant]
     Dosage: UNK UNK, OW
     Dates: start: 2011

REACTIONS (60)
  - Clostridium difficile infection [Recovering/Resolving]
  - Nausea [Recovering/Resolving]
  - Diarrhoea [Recovering/Resolving]
  - Decreased appetite [Recovering/Resolving]
  - Dehydration [Recovering/Resolving]
  - Diarrhoea haemorrhagic [Recovering/Resolving]
  - Diarrhoea [Recovering/Resolving]
  - Vomiting [Recovered/Resolved]
  - Headache [Recovered/Resolved]
  - Dyspepsia [Recovered/Resolved]
  - Anxiety [Recovered/Resolved]
  - Restlessness [Recovered/Resolved]
  - Paraesthesia [Recovered/Resolved]
  - Insomnia [Recovered/Resolved]
  - Tremor [Recovered/Resolved]
  - Vision blurred [Not Recovered/Not Resolved]
  - Conjunctivitis [Recovered/Resolved]
  - Dyspnoea [Recovered/Resolved]
  - Dry skin [Recovered/Resolved]
  - Malaise [Not Recovered/Not Resolved]
  - Tinnitus [Recovered/Resolved]
  - Swelling face [Recovered/Resolved]
  - Oral pain [Recovered/Resolved]
  - Alopecia [Not Recovered/Not Resolved]
  - Haemorrhoids [Recovered/Resolved]
  - Intestinal prolapse [Recovered/Resolved]
  - Abdominal pain upper [Recovered/Resolved]
  - Faeces pale [Recovered/Resolved]
  - Coagulopathy [Recovered/Resolved]
  - Increased tendency to bruise [Recovered/Resolved]
  - Flatulence [Recovered/Resolved]
  - Abdominal discomfort [Recovered/Resolved]
  - Gastritis [Recovered/Resolved]
  - Rash pruritic [Recovered/Resolved]
  - Urticaria [Recovered/Resolved]
  - Hyperhidrosis [Recovered/Resolved]
  - Haemoglobin decreased [Recovered/Resolved]
  - Emotional disorder [Recovered/Resolved]
  - Depression [Recovered/Resolved]
  - Hypoaesthesia [Not Recovered/Not Resolved]
  - Balance disorder [Recovered/Resolved]
  - Disturbance in attention [Recovered/Resolved]
  - Heart rate increased [Recovered/Resolved]
  - Stomatitis [Recovered/Resolved]
  - Muscle spasms [Recovered/Resolved]
  - Muscular weakness [Recovered/Resolved]
  - Oedema peripheral [Recovered/Resolved]
  - Oedema peripheral [Recovered/Resolved]
  - Joint swelling [Recovered/Resolved]
  - Mucous membrane disorder [Recovered/Resolved]
  - Mental disorder [Recovered/Resolved]
  - Fatigue [Recovered/Resolved]
  - Hyperaesthesia [Recovered/Resolved]
  - Myasthenic syndrome [Recovered/Resolved]
  - Myxoedema [Recovered/Resolved]
  - Colitis ulcerative [Recovering/Resolving]
  - Diarrhoea [Recovering/Resolving]
  - Haemorrhage [Recovering/Resolving]
  - Osteoporosis [Recovered/Resolved]
  - Hypoaesthesia [Not Recovered/Not Resolved]
